FAERS Safety Report 25156752 (Version 2)
Quarter: 2025Q2

REPORT INFORMATION
  Report Type: Spontaneous
  Country: DE (occurrence: DE)
  Receive Date: 20250403
  Receipt Date: 20250407
  Transmission Date: 20250716
  Serious: Yes (Hospitalization)
  Sender: BOEHRINGER INGELHEIM
  Company Number: DE-Komodo Health-a23aa000006jl7NAAQ

PATIENT
  Sex: Female

DRUGS (1)
  1. PRADAXA [Suspect]
     Active Substance: DABIGATRAN ETEXILATE MESYLATE
     Indication: Cerebrovascular accident prophylaxis
     Dosage: 1-0-1
     Dates: start: 20230823

REACTIONS (2)
  - Hip surgery [Unknown]
  - Product storage error [Recovered/Resolved]
